FAERS Safety Report 6445279-X (Version None)
Quarter: 2009Q4

REPORT INFORMATION
  Report Type: 
  Country: None (occurrence: None)
  Receive Date: 20091118
  Receipt Date: 20091108
  Transmission Date: 20100525
  Serious: Yes (Other)
  Sender: FDA-Public Use
  Company Number: US-PFIZER INC-2009296109

PATIENT
  Sex: Female
  Weight: 108.86 kg

DRUGS (5)
  1. CHANTIX [Suspect]
     Indication: SMOKING CESSATION THERAPY
     Dosage: 1 MG, 1X/DAY
     Route: 048
     Dates: start: 20090901, end: 20091001
  2. CELEXA [Concomitant]
     Indication: SCHIZOAFFECTIVE DISORDER
  3. SEROQUEL [Concomitant]
     Indication: SCHIZOAFFECTIVE DISORDER
  4. CYMBALTA [Concomitant]
     Indication: SCHIZOAFFECTIVE DISORDER
  5. PRILOSEC [Concomitant]

REACTIONS (2)
  - DEPRESSION [None]
  - PARANOIA [None]
